FAERS Safety Report 14068703 (Version 2)
Quarter: 2017Q4

REPORT INFORMATION
  Report Type: Spontaneous
  Country: US (occurrence: US)
  Receive Date: 20171010
  Receipt Date: 20171228
  Transmission Date: 20180321
  Serious: No
  Sender: FDA-Public Use
  Company Number: US-SHIRE-US201724538

PATIENT
  Age: 49 Year

DRUGS (5)
  1. ADDERALL XR [Suspect]
     Active Substance: AMPHETAMINE ASPARTATE\AMPHETAMINE SULFATE\DEXTROAMPHETAMINE SACCHARATE\DEXTROAMPHETAMINE SULFATE
     Dosage: 45 MG, 1X/DAY:QD
     Route: 065
  2. VYVANSE [Suspect]
     Active Substance: LISDEXAMFETAMINE DIMESYLATE
     Indication: PRODUCT USED FOR UNKNOWN INDICATION
     Dosage: 70 MG, 1X/DAY:QD
     Route: 048
     Dates: start: 201707
  3. CYTOMEL [Concomitant]
     Active Substance: LIOTHYRONINE SODIUM
     Indication: PRODUCT USED FOR UNKNOWN INDICATION
     Dosage: 1.25 MG, 1X/DAY:QD
     Route: 048
  4. MYDAYIS [Suspect]
     Active Substance: AMPHETAMINE ASPARTATE\AMPHETAMINE SULFATE\DEXTROAMPHETAMINE SACCHARATE\DEXTROAMPHETAMINE SULFATE
     Indication: PRODUCT USED FOR UNKNOWN INDICATION
     Dosage: 50 MG, UNK
     Route: 065
  5. ADDERALL XR [Suspect]
     Active Substance: AMPHETAMINE ASPARTATE\AMPHETAMINE SULFATE\DEXTROAMPHETAMINE SACCHARATE\DEXTROAMPHETAMINE SULFATE
     Indication: ATTENTION DEFICIT/HYPERACTIVITY DISORDER
     Dosage: 15 MG, 1X/DAY:QD
     Route: 065

REACTIONS (13)
  - Bladder disorder [Unknown]
  - Fatigue [Unknown]
  - Swelling [Unknown]
  - Liver disorder [Unknown]
  - Drug ineffective [Recovered/Resolved]
  - Dry mouth [Unknown]
  - Hypertrophy of tongue papillae [Unknown]
  - Dizziness [Recovered/Resolved]
  - Tremor [Unknown]
  - Cerebral disorder [Unknown]
  - Product physical issue [Unknown]
  - Ageusia [Unknown]
  - Anosmia [Unknown]
